FAERS Safety Report 6527361-1 (Version None)
Quarter: 2010Q1

REPORT INFORMATION
  Report Type: 
  Country: None (occurrence: None)
  Receive Date: 20100104
  Receipt Date: 20100104
  Transmission Date: 20100710
  Serious: No
  Sender: FDA-Public Use
  Company Number: None

PATIENT
  Age: 29 Year
  Sex: Female
  Weight: 77.1115 kg

DRUGS (1)
  1. OXYMETAZOLINE HYDROCHLORIDE SPRAY [Suspect]
     Dosage: 3 SPRAYS IN EACH NOSTRIL EVERY 10 TO 12 HOU INHAL
     Route: 055
     Dates: start: 20091230, end: 20100101

REACTIONS (3)
  - AGEUSIA [None]
  - ANOSMIA [None]
  - FEAR [None]
